FAERS Safety Report 13136156 (Version 1)
Quarter: 2017Q1

REPORT INFORMATION
  Report Type: Spontaneous
  Country: FR (occurrence: FR)
  Receive Date: 20170121
  Receipt Date: 20170121
  Transmission Date: 20170428
  Serious: Yes (Death, Hospitalization, Other)
  Sender: FDA-Public Use
  Company Number: FR-ACCORD-047552

PATIENT
  Age: 69 Year
  Sex: Female
  Weight: 45 kg

DRUGS (10)
  1. RISEDRONATE SODIUM/RISEDRONIC ACID [Concomitant]
  2. FENTANYL. [Concomitant]
     Active Substance: FENTANYL
     Route: 062
  3. TRAMADOL/TRAMADOL HYDROCHLORIDE [Suspect]
     Active Substance: TRAMADOL HYDROCHLORIDE
     Indication: PRODUCT USED FOR UNKNOWN INDICATION
     Dosage: 3-4 TIMES A DAY
  4. PAROXETINE. [Concomitant]
     Active Substance: PAROXETINE
  5. NORETHANDROLONE. [Concomitant]
     Active Substance: NORETHANDROLONE
  6. LEVOTHYROXINE. [Concomitant]
     Active Substance: LEVOTHYROXINE
  7. EPOETIN ALFA [Concomitant]
     Active Substance: ERYTHROPOIETIN
  8. PREDNISONE. [Concomitant]
     Active Substance: PREDNISONE
  9. OMEPRAZOLE. [Concomitant]
     Active Substance: OMEPRAZOLE
  10. CLONAZEPAM. [Concomitant]
     Active Substance: CLONAZEPAM

REACTIONS (8)
  - Hypoglycaemia [Fatal]
  - Multiple organ dysfunction syndrome [Fatal]
  - Renal impairment [Fatal]
  - Toxicity to various agents [Fatal]
  - Metabolic acidosis [Fatal]
  - Hepatitis [Fatal]
  - Supraventricular tachycardia [Fatal]
  - Cardio-respiratory arrest [Fatal]
